FAERS Safety Report 22636862 (Version 1)
Quarter: 2023Q2

REPORT INFORMATION
  Report Type: Spontaneous
  Country: FR (occurrence: FR)
  Receive Date: 20230626
  Receipt Date: 20230626
  Transmission Date: 20230721
  Serious: Yes (Life-Threatening, Other)
  Sender: FDA-Public Use
  Company Number: FR-Accord-363459

PATIENT
  Age: 81 Year
  Sex: Female
  Weight: 68 kg

DRUGS (2)
  1. CARBOPLATIN [Suspect]
     Active Substance: CARBOPLATIN
     Indication: Endometrial adenocarcinoma
     Dosage: STRENGTH: 10 MG/ML; 150 MG ON D1, D8, D15, IN A 28-DAY CYCLE
     Route: 042
     Dates: start: 20230530, end: 20230613
  2. TAXOL [Concomitant]
     Active Substance: PACLITAXEL
     Indication: Endometrial adenocarcinoma
     Dosage: WEEKLY TAXOL-CARBO CHEMOTHERAPY PROTOCOL
     Route: 042
     Dates: start: 20230530

REACTIONS (2)
  - Anaphylactic shock [Recovered/Resolved]
  - Anal incontinence [Recovered/Resolved]

NARRATIVE: CASE EVENT DATE: 20230613
